FAERS Safety Report 7020894-3 (Version None)
Quarter: 2010Q3

REPORT INFORMATION
  Report Type: 
  Country: None (occurrence: None)
  Receive Date: 20100929
  Receipt Date: 20100920
  Transmission Date: 20110219
  Serious: Yes (Hospitalization, Other)
  Sender: FDA-Public Use
  Company Number: BR-ABBOTT-09P-020-0602932-00

PATIENT
  Sex: Female
  Weight: 63 kg

DRUGS (15)
  1. HUMIRA [Suspect]
     Indication: RHEUMATOID ARTHRITIS
     Route: 058
     Dates: start: 20090114
  2. HUMIRA [Suspect]
     Route: 058
  3. PURAN T4 [Suspect]
     Indication: HYPOTHYROIDISM
     Route: 048
     Dates: start: 20080101
  4. PURAN T4 [Suspect]
     Dates: start: 20060101
  5. ARAVA [Concomitant]
     Indication: RHEUMATOID ARTHRITIS
     Route: 048
     Dates: start: 20040101
  6. ARAVA [Concomitant]
     Route: 048
     Dates: start: 20050707
  7. SUPRELLE [Concomitant]
     Indication: HORMONE REPLACEMENT THERAPY
     Route: 048
     Dates: start: 20050101
  8. PRES PLUS [Concomitant]
     Indication: HYPERTENSION
     Route: 048
     Dates: start: 20080101
  9. DIGEPLUS [Concomitant]
     Indication: DIVERTICULITIS
     Route: 048
     Dates: start: 20091001
  10. PANTOPRAZOLE SODIUM [Concomitant]
     Indication: GASTRIC DISORDER
     Route: 048
     Dates: start: 20050101
  11. PANTOPRAZOLE SODIUM [Concomitant]
     Indication: GASTRITIS
  12. LEVOID [Concomitant]
     Indication: HYPOTHYROIDISM
     Route: 048
     Dates: start: 20060101
  13. PRETIPLUS [Concomitant]
     Indication: HYPERTENSION
     Route: 048
     Dates: start: 20070101
  14. MOTILIUM [Concomitant]
     Indication: GASTROOESOPHAGEAL REFLUX DISEASE
     Route: 048
     Dates: start: 20100701
  15. VENALOT [Concomitant]
     Indication: PERIPHERAL VASCULAR DISORDER
     Route: 048
     Dates: start: 20040101

REACTIONS (11)
  - ABDOMINAL PAIN UPPER [None]
  - ARTHRALGIA [None]
  - BONE EROSION [None]
  - CYST [None]
  - FATIGUE [None]
  - GASTROOESOPHAGEAL REFLUX DISEASE [None]
  - HAEMATOMA [None]
  - LYMPHOEDEMA [None]
  - MUSCLE MASS [None]
  - PAIN IN EXTREMITY [None]
  - WEIGHT DECREASED [None]
